FAERS Safety Report 25929654 (Version 1)
Quarter: 2025Q4

REPORT INFORMATION
  Report Type: Spontaneous
  Country: JP (occurrence: JP)
  Receive Date: 20251016
  Receipt Date: 20251016
  Transmission Date: 20260119
  Serious: Yes (Other)
  Sender: COSETTE PHARMACEUTICALS INC
  Company Number: GB-MLMSERVICE-20241220-PI305428-00338-3

PATIENT
  Age: 87 Year
  Sex: Female

DRUGS (1)
  1. AMBIEN [Suspect]
     Active Substance: ZOLPIDEM TARTRATE
     Indication: Schizoaffective disorder
     Route: 065

REACTIONS (2)
  - Off label use [Unknown]
  - Delirium [Unknown]
